FAERS Safety Report 23136858 (Version 1)
Quarter: 2023Q4

REPORT INFORMATION
  Report Type: Spontaneous
  Country: DE (occurrence: DE)
  Receive Date: 20231102
  Receipt Date: 20231102
  Transmission Date: 20240110
  Serious: Yes (Other)
  Sender: FDA-Public Use
  Company Number: DE-ALKEM LABORATORIES LIMITED-DE-ALKEM-2023-13036

PATIENT
  Age: 38 Year
  Sex: Male

DRUGS (13)
  1. LACOSAMIDE [Suspect]
     Active Substance: LACOSAMIDE
     Indication: Generalised tonic-clonic seizure
     Dosage: UNK
     Route: 065
  2. LACOSAMIDE [Suspect]
     Active Substance: LACOSAMIDE
     Dosage: UNK (RESTARTED DOSE)
     Route: 065
  3. LEVETIRACETAM [Suspect]
     Active Substance: LEVETIRACETAM
     Indication: Generalised tonic-clonic seizure
     Dosage: UNK
     Route: 065
  4. LEVETIRACETAM [Suspect]
     Active Substance: LEVETIRACETAM
     Dosage: UNK (RESTARTED DOSE)
     Route: 065
  5. VALPROATE [Suspect]
     Active Substance: VALPROIC ACID
     Indication: Generalised tonic-clonic seizure
     Dosage: UNK
     Route: 065
  6. VALPROATE [Suspect]
     Active Substance: VALPROIC ACID
     Dosage: 4500 MILLIGRAM
     Route: 065
  7. LAMOTRIGINE [Concomitant]
     Active Substance: LAMOTRIGINE
     Indication: Product used for unknown indication
     Dosage: 600 MILLIGRAM
     Route: 065
  8. LAMOTRIGINE [Concomitant]
     Active Substance: LAMOTRIGINE
     Dosage: 350 MILLIGRAM, QD (EVERY 1 DAY)
     Route: 065
  9. METAMIZOLE [Concomitant]
     Active Substance: METAMIZOLE
     Indication: Product used for unknown indication
     Dosage: 500 MILLIGRAM, QD (EVERY 1 DAY)
     Route: 065
  10. PANTOPRAZOLE SODIUM [Concomitant]
     Active Substance: PANTOPRAZOLE SODIUM
     Indication: Product used for unknown indication
     Dosage: 40 MILLIGRAM, QD (EVERY 1 DAY)
     Route: 065
  11. PERAMPANEL [Concomitant]
     Active Substance: PERAMPANEL
     Indication: Generalised tonic-clonic seizure
     Dosage: UNK
     Route: 065
  12. RAMIPRIL [Concomitant]
     Active Substance: RAMIPRIL
     Indication: Product used for unknown indication
     Dosage: 5 MILLIGRAM, QD (EVERY 1 DAY)
     Route: 065
  13. ZONISAMIDE [Concomitant]
     Active Substance: ZONISAMIDE
     Indication: Product used for unknown indication
     Dosage: 800 MILLIGRAM, QD (EVERY 1 DAY)
     Route: 065

REACTIONS (3)
  - Delirium [Unknown]
  - Postictal paralysis [Unknown]
  - Multiple-drug resistance [Unknown]
